FAERS Safety Report 7678363-3 (Version None)
Quarter: 2011Q3

REPORT INFORMATION
  Report Type: 
  Country: None (occurrence: None)
  Receive Date: 20110811
  Receipt Date: 20110809
  Transmission Date: 20111222
  Serious: No
  Sender: FDA-Public Use
  Company Number: US-PFIZER INC-2011183792

PATIENT
  Sex: Male
  Weight: 100 kg

DRUGS (3)
  1. CHANTIX [Suspect]
     Indication: SMOKING CESSATION THERAPY
     Dosage: 0.5 MG, DAILY
     Route: 048
     Dates: start: 20110701, end: 20110101
  2. CHANTIX [Suspect]
     Dosage: 1 MG, 2X/DAY
     Route: 048
     Dates: start: 20110101
  3. NAPROXEN (ALEVE) [Concomitant]
     Dosage: UNK

REACTIONS (4)
  - INFLUENZA [None]
  - SLEEP DISORDER [None]
  - FATIGUE [None]
  - DYSGEUSIA [None]
